FAERS Safety Report 7548017-2 (Version None)
Quarter: 2011Q2

REPORT INFORMATION
  Report Type: 
  Country: None (occurrence: None)
  Receive Date: 20110608
  Receipt Date: 20110525
  Transmission Date: 20111010
  Serious: Yes (Hospitalization)
  Sender: FDA-Public Use
  Company Number: TIF2011A00050

PATIENT
  Age: 62 Year
  Sex: Female

DRUGS (3)
  1. COMPETACT (PIOGLITAZONE HYDROCHLORIDE, METFORMIN HYDROCHLORIDE) [Suspect]
     Indication: TYPE 2 DIABETES MELLITUS
     Dosage: 2 IN 1 D, ORAL
     Route: 048
     Dates: start: 20110223, end: 20110227
  2. PLAUNAZIDE [Concomitant]
  3. VYTORIN [Concomitant]

REACTIONS (2)
  - CHEST PAIN [None]
  - URTICARIA [None]
